FAERS Safety Report 14310566 (Version 3)
Quarter: 2018Q1

REPORT INFORMATION
  Report Type: Spontaneous
  Country: US (occurrence: US)
  Receive Date: 20171220
  Receipt Date: 20180111
  Transmission Date: 20180509
  Serious: Yes (Hospitalization)
  Sender: FDA-Public Use
  Company Number: US-VIFOR (INTERNATIONAL) INC.-VIT-2017-13084

PATIENT
  Age: 75 Year
  Sex: Male
  Weight: 100.79 kg

DRUGS (18)
  1. AMIODARONE HYDROCHLORIDE. [Concomitant]
     Active Substance: AMIODARONE HYDROCHLORIDE
  2. RANEXA [Concomitant]
     Active Substance: RANOLAZINE
  3. TORASEMIDE [Concomitant]
     Active Substance: TORSEMIDE
  4. XARELTO [Concomitant]
     Active Substance: RIVAROXABAN
  5. NITRO-DUR [Concomitant]
     Active Substance: NITROGLYCERIN
  6. ALLOPURINOL. [Concomitant]
     Active Substance: ALLOPURINOL
  7. VELTASSA [Suspect]
     Active Substance: PATIROMER
     Indication: HYPERKALAEMIA
     Route: 048
     Dates: start: 201711, end: 201711
  8. CARVEDILOL. [Concomitant]
     Active Substance: CARVEDILOL
  9. LEVOTHYROXINE SODIUM. [Concomitant]
     Active Substance: LEVOTHYROXINE SODIUM
  10. NITROSTAT [Concomitant]
     Active Substance: NITROGLYCERIN
  11. OMEPRAZOLE. [Concomitant]
     Active Substance: OMEPRAZOLE
  12. PLAVIX [Concomitant]
     Active Substance: CLOPIDOGREL BISULFATE
  13. LISINOPRIL. [Concomitant]
     Active Substance: LISINOPRIL
  14. FISH OIL [Concomitant]
     Active Substance: FISH OIL
  15. STARLIX [Concomitant]
     Active Substance: NATEGLINIDE
  16. ATORVASTATIN CALCIUM. [Concomitant]
     Active Substance: ATORVASTATIN CALCIUM
  17. NOVOLOG [Concomitant]
     Active Substance: INSULIN ASPART
  18. LEVEMIR [Concomitant]
     Active Substance: INSULIN DETEMIR

REACTIONS (4)
  - Tremor [Unknown]
  - Constipation [Recovered/Resolved]
  - Dizziness [Unknown]
  - Discomfort [Not Recovered/Not Resolved]

NARRATIVE: CASE EVENT DATE: 2017
